FAERS Safety Report 18326555 (Version 1)
Quarter: 2020Q3

REPORT INFORMATION
  Report Type: Spontaneous
  Country: FR (occurrence: FR)
  Receive Date: 20200929
  Receipt Date: 20200929
  Transmission Date: 20201103
  Serious: Yes (Hospitalization)
  Sender: FDA-Public Use
  Company Number: FR-MYLANLABS-2020M1081982

PATIENT
  Age: 31 Year
  Sex: Male
  Weight: 77.5 kg

DRUGS (4)
  1. ADALIMUMAB [Interacting]
     Active Substance: ADALIMUMAB
     Indication: RETINAL VASCULITIS
     Dosage: 40 MILLIGRAM, BIMONTHLY (15 DAYS)
     Route: 058
     Dates: start: 202003, end: 20200725
  2. SPECIAFOLDINE [Concomitant]
     Active Substance: FOLIC ACID
     Indication: VITAMIN SUPPLEMENTATION
     Dosage: 1 DOSAGE FORM, QW
     Route: 048
     Dates: start: 202007, end: 20200725
  3. CORTANCYL [Interacting]
     Active Substance: PREDNISONE
     Indication: RETINAL VASCULITIS
     Dosage: 16 MILLIGRAM, QD
     Route: 048
     Dates: start: 202001
  4. METHOTREXATE. [Suspect]
     Active Substance: METHOTREXATE
     Indication: RETINAL VASCULITIS
     Dosage: 15 MILLIGRAM, QW
     Route: 048
     Dates: start: 20200702, end: 20200725

REACTIONS (2)
  - Drug interaction [Recovering/Resolving]
  - Disseminated tuberculosis [Recovering/Resolving]

NARRATIVE: CASE EVENT DATE: 202007
